FAERS Safety Report 12875585 (Version 1)
Quarter: 2016Q4

REPORT INFORMATION
  Report Type: Spontaneous
  Country: JP (occurrence: JP)
  Receive Date: 20161024
  Receipt Date: 20161024
  Transmission Date: 20170207
  Serious: Yes (Other)
  Sender: FDA-Public Use
  Company Number: JP-009507513-1610JPN011049

PATIENT
  Sex: Female

DRUGS (2)
  1. NU-LOTAN [Suspect]
     Active Substance: LOSARTAN POTASSIUM
     Dosage: 25 MG ONCE A DAY
     Route: 048
  2. DIOVAN [Concomitant]
     Active Substance: VALSARTAN
     Dosage: DAILY DOSE UNKNOWN
     Route: 048

REACTIONS (1)
  - Arrhythmia [Recovered/Resolved]
